FAERS Safety Report 5907581-7 (Version None)
Quarter: 2008Q4

REPORT INFORMATION
  Report Type: 
  Country: None (occurrence: None)
  Receive Date: 20081003
  Receipt Date: 20080924
  Transmission Date: 20090506
  Serious: Yes (Death, Other)
  Sender: FDA-Public Use
  Company Number: JP-MERCK-0807USA01880

PATIENT
  Age: 60 Year
  Sex: Female

DRUGS (13)
  1. PEPCID RPD [Suspect]
     Indication: NAUSEA
     Route: 048
     Dates: start: 20070526, end: 20070612
  2. SEDAPRAN [Suspect]
     Indication: PANIC DISORDER
     Route: 048
     Dates: start: 20070602, end: 20070606
  3. PAXIL [Concomitant]
     Indication: PANIC DISORDER
     Route: 048
     Dates: start: 20070511, end: 20070612
  4. PAXIL [Concomitant]
     Indication: INSOMNIA
     Route: 048
     Dates: start: 20070511, end: 20070612
  5. VEGETAMIN [Concomitant]
     Indication: PANIC DISORDER
     Route: 048
     Dates: start: 20070508, end: 20070612
  6. VEGETAMIN [Concomitant]
     Indication: SLEEP DISORDER
     Route: 048
     Dates: start: 20070508, end: 20070612
  7. ROHYPNOL [Concomitant]
     Indication: PANIC DISORDER
     Route: 048
     Dates: start: 20070508, end: 20070730
  8. ROHYPNOL [Concomitant]
     Indication: INSOMNIA
     Route: 048
     Dates: start: 20070508, end: 20070730
  9. DEPAS [Concomitant]
     Indication: PANIC DISORDER
     Route: 048
     Dates: start: 20070430, end: 20070612
  10. DEPAS [Concomitant]
     Indication: INSOMNIA
     Route: 048
     Dates: start: 20070430, end: 20070612
  11. DOMPERIDONE [Concomitant]
     Indication: NAUSEA
     Route: 048
     Dates: start: 20070526, end: 20070628
  12. ATARAX [Concomitant]
     Indication: PANIC DISORDER
     Route: 048
     Dates: start: 20070524, end: 20070730
  13. ZYRTEC [Concomitant]
     Indication: ECZEMA
     Route: 048
     Dates: start: 20070610, end: 20070730

REACTIONS (4)
  - ANAPHYLACTIC REACTION [None]
  - LIVER DISORDER [None]
  - SEPSIS [None]
  - TOXIC EPIDERMAL NECROLYSIS [None]
